FAERS Safety Report 8829196 (Version 2)
Quarter: 2013Q1

REPORT INFORMATION
  Report Type: Spontaneous
  Country: US (occurrence: US)
  Receive Date: 20121009
  Receipt Date: 20130125
  Transmission Date: 20140127
  Serious: No
  Sender: FDA-Public Use
  Company Number: US-009507513-1210USA002132

PATIENT
  Age: 33 None
  Sex: Female
  Weight: 68.48 kg

DRUGS (6)
  1. SAPHRIS [Suspect]
     Indication: BIPOLAR I DISORDER
     Dosage: 5 MG, HS
     Route: 048
     Dates: start: 20120927
  2. SAPHRIS [Suspect]
     Indication: POST-TRAUMATIC STRESS DISORDER
  3. SAPHRIS [Suspect]
     Indication: ATTENTION DEFICIT/HYPERACTIVITY DISORDER
  4. CYMBALTA [Concomitant]
  5. PRAZOSIN [Concomitant]
  6. VALIUM [Concomitant]

REACTIONS (6)
  - Oral pain [Not Recovered/Not Resolved]
  - Glossodynia [Not Recovered/Not Resolved]
  - Eating disorder [Unknown]
  - Incorrect route of drug administration [Unknown]
  - Inappropriate schedule of drug administration [Unknown]
  - Underdose [Unknown]
